FAERS Safety Report 4543319-6 (Version None)
Quarter: 2004Q4

REPORT INFORMATION
  Report Type: 
  Country: None (occurrence: None)
  Receive Date: 20041230
  Receipt Date: 20041230
  Transmission Date: 20050328
  Serious: Yes (Other)
  Sender: FDA-Public Use
  Company Number: None

PATIENT
  Age: 41 Year
  Sex: Male
  Weight: 92.99 kg

DRUGS (1)
  1. VALPROIC ACID [Suspect]
     Dosage: 500 MG   BID   ORAL
     Route: 048

REACTIONS (1)
  - PLATELET COUNT DECREASED [None]
